FAERS Safety Report 21141214 (Version 1)
Quarter: 2022Q3

REPORT INFORMATION
  Report Type: Spontaneous
  Country: US (occurrence: None)
  Receive Date: 20220727
  Receipt Date: 20220727
  Transmission Date: 20221027
  Serious: Yes (Other)
  Sender: FDA-Public Use
  Company Number: None

PATIENT
  Sex: Female

DRUGS (9)
  1. HUMIRA [Suspect]
     Active Substance: ADALIMUMAB
     Indication: Crohn^s disease
     Dosage: OTHER QUANTITY : 40 MG/0.8ML;?FREQUENCY : WEEKLY;?
     Route: 058
     Dates: start: 20150904, end: 202207
  2. ALPRAZOLAM [Concomitant]
     Active Substance: ALPRAZOLAM
  3. BENZOYL PER LIQ [Concomitant]
  4. FAMOTIDINE [Concomitant]
     Active Substance: FAMOTIDINE
  5. GAVILYTE-C SOL [Concomitant]
  6. PANTOPRAZOLE [Concomitant]
     Active Substance: PANTOPRAZOLE
  7. SUPREP BOWEL SOL PREP KIT [Concomitant]
  8. TRIAMCINOLONE ACETONIDE [Concomitant]
     Active Substance: TRIAMCINOLONE ACETONIDE
  9. VALACYCLOVIR [Concomitant]
     Active Substance: VALACYCLOVIR HYDROCHLORIDE

REACTIONS (1)
  - Neoplasm malignant [None]
